FAERS Safety Report 14322522 (Version 2)
Quarter: 2018Q1

REPORT INFORMATION
  Report Type: Spontaneous
  Country: JP (occurrence: JP)
  Receive Date: 20171225
  Receipt Date: 20180316
  Transmission Date: 20180509
  Serious: Yes (Other)
  Sender: FDA-Public Use
  Company Number: JP-GLAXOSMITHKLINE-JP2017JPN197331

PATIENT
  Age: 7 Decade
  Sex: Female

DRUGS (1)
  1. MEPOLIZUMAB [Suspect]
     Active Substance: MEPOLIZUMAB
     Indication: ASTHMA
     Dosage: 100 MG, UNK
     Route: 058
     Dates: start: 201703, end: 201709

REACTIONS (3)
  - Eosinophilic granulomatosis with polyangiitis [Unknown]
  - Neuralgia [Recovering/Resolving]
  - Neuropathy peripheral [Unknown]
